FAERS Safety Report 16660594 (Version 1)
Quarter: 2019Q3

REPORT INFORMATION
  Report Type: Other
  Country: ES (occurrence: ES)
  Receive Date: 20190802
  Receipt Date: 20190802
  Transmission Date: 20191004
  Serious: Yes (Other)
  Sender: FDA-Public Use
  Company Number: ES-APOTEX-2019AP019350

PATIENT
  Age: 76 Year
  Sex: Female
  Weight: 50 kg

DRUGS (5)
  1. MEMANTINE. [Suspect]
     Active Substance: MEMANTINE
     Indication: COGNITIVE DISORDER
     Dosage: 1 DF, QD
     Route: 048
     Dates: start: 20190526, end: 20190711
  2. MEMANTINE. [Suspect]
     Active Substance: MEMANTINE
     Dosage: 10 MG, WITH BREAKFAST A WEEK  UNK
     Route: 048
  3. MEMANTINE. [Suspect]
     Active Substance: MEMANTINE
     Dosage: 5 MG, WITH BREAKFAST A WEEK UNK
     Route: 048
  4. MEMANTINE. [Suspect]
     Active Substance: MEMANTINE
     Dosage: 15 MG, WITH BREAKFAST A WEEK, UNK
     Route: 048
  5. MEMANTINE. [Suspect]
     Active Substance: MEMANTINE
     Dosage: 20 MG, QD, WITH BREAKFAST
     Route: 048

REACTIONS (3)
  - Dizziness [Unknown]
  - Bradycardia [Unknown]
  - Blood pressure systolic increased [Unknown]

NARRATIVE: CASE EVENT DATE: 2019
